FAERS Safety Report 4698474-4 (Version None)
Quarter: 2005Q2

REPORT INFORMATION
  Report Type: 
  Country: None (occurrence: None)
  Receive Date: 20050621
  Receipt Date: 20050608
  Transmission Date: 20051028
  Serious: Yes (Death)
  Sender: FDA-Public Use
  Company Number: EWC050644420

PATIENT
  Age: 40 Year
  Sex: Male
  Weight: 80 kg

DRUGS (7)
  1. OLANZAPINE [Suspect]
     Indication: SCHIZOPHRENIA
     Dosage: 15 MG DAY
     Dates: start: 20050606, end: 20050606
  2. VALIUM [Concomitant]
  3. CHLORPROMAZINE HCL [Concomitant]
  4. LORAZEPAM [Concomitant]
  5. TRAMADOL HCL [Concomitant]
  6. DICLOFENAC SODIUM [Concomitant]
  7. CEFUROXIME SODIUM [Concomitant]

REACTIONS (7)
  - AGITATION [None]
  - INTENTIONAL SELF-INJURY [None]
  - MYOCARDIAL INFARCTION [None]
  - OPEN WOUND [None]
  - SEDATION [None]
  - SEPSIS [None]
  - SOMNOLENCE [None]
